FAERS Safety Report 18735821 (Version 2)
Quarter: 2021Q2

REPORT INFORMATION
  Report Type: Spontaneous
  Country: US (occurrence: US)
  Receive Date: 20210113
  Receipt Date: 20210401
  Transmission Date: 20210717
  Serious: Yes (Other)
  Sender: FDA-Public Use
  Company Number: US-BAYER-2021-021706

PATIENT
  Age: 31 Year
  Sex: Female
  Weight: 82.54 kg

DRUGS (1)
  1. MIRENA [Suspect]
     Active Substance: LEVONORGESTREL
     Indication: CONTRACEPTION
     Dosage: 20  ?G PER DAY CONTINUOUSLY
     Route: 015
     Dates: start: 20210111, end: 20210111

REACTIONS (3)
  - Device difficult to use [None]
  - Uterine perforation [Recovered/Resolved]
  - Complication of device insertion [None]

NARRATIVE: CASE EVENT DATE: 20210111
